FAERS Safety Report 23805384 (Version 1)
Quarter: 2024Q2

REPORT INFORMATION
  Report Type: Spontaneous
  Country: CZ (occurrence: CZ)
  Receive Date: 20240502
  Receipt Date: 20240502
  Transmission Date: 20240715
  Serious: Yes (Other)
  Sender: FDA-Public Use
  Company Number: None

PATIENT
  Age: 31 Year
  Sex: Female

DRUGS (2)
  1. MAVENCLAD [Suspect]
     Active Substance: CLADRIBINE
     Indication: Multiple sclerosis
     Dosage: FIRST CYCLE THERAPY
     Route: 048
     Dates: start: 20220915, end: 202210
  2. MAVENCLAD [Suspect]
     Active Substance: CLADRIBINE
     Dosage: SECOND CYCLE THERAPY
     Route: 048
     Dates: start: 202309, end: 20231017

REACTIONS (2)
  - Contraindicated product administered [Unknown]
  - Exposure during pregnancy [Unknown]

NARRATIVE: CASE EVENT DATE: 20240101
